FAERS Safety Report 5668232-2 (Version None)
Quarter: 2008Q1

REPORT INFORMATION
  Report Type: 
  Country: None (occurrence: None)
  Receive Date: 20080313
  Receipt Date: 20080228
  Transmission Date: 20080703
  Serious: Yes (Hospitalization, Other)
  Sender: FDA-Public Use
  Company Number: 2008005335

PATIENT
  Sex: Male

DRUGS (2)
  1. MINOXIDIL [Suspect]
     Dosage: TOPICAL
     Route: 061
     Dates: start: 20061001
  2. AZATHIOPRINE [Concomitant]

REACTIONS (1)
  - THROMBOCYTOPENIA [None]
